FAERS Safety Report 18115818 (Version 4)
Quarter: 2020Q3

REPORT INFORMATION
  Report Type: Spontaneous
  Country: CZ (occurrence: CZ)
  Receive Date: 20200805
  Receipt Date: 20200903
  Transmission Date: 20201103
  Serious: Yes (Life-Threatening, Hospitalization, Other)
  Sender: FDA-Public Use
  Company Number: CZ-MYLANLABS-2020M1068813

PATIENT
  Age: 67 Year
  Sex: Female
  Weight: 78 kg

DRUGS (14)
  1. ROCURONIUM [Concomitant]
     Active Substance: ROCURONIUM BROMIDE
     Indication: ANAESTHESIA
  2. SEVOFLURANE. [Concomitant]
     Active Substance: SEVOFLURANE
     Indication: ANAESTHESIA PROCEDURE
     Dosage: UNK
  3. CLOPIDOGREL [Suspect]
     Active Substance: CLOPIDOGREL BISULFATE
     Indication: ANTIPLATELET THERAPY
     Dosage: 300 MILLIGRAM
  4. FENTANYL. [Concomitant]
     Active Substance: FENTANYL
     Indication: ANAESTHETIC PREMEDICATION
     Dosage: UNK
  5. PROPOFOL. [Concomitant]
     Active Substance: PROPOFOL
     Indication: ANAESTHESIA
  6. CLOPIDOGREL [Suspect]
     Active Substance: CLOPIDOGREL BISULFATE
     Dosage: 300 MILLIGRAM DAILY; ADMINISTRED 300 MG AT TWO DOSES
  7. CLOPIDOGREL [Suspect]
     Active Substance: CLOPIDOGREL BISULFATE
     Indication: THROMBOSIS PROPHYLAXIS
     Dosage: 150 MILLIGRAM
  8. ACETYLSALICYLIC ACID [Suspect]
     Active Substance: ASPIRIN
     Indication: ANTIPLATELET THERAPY
     Dosage: 200 MILLIGRAM(200 MILLIGRAM IN TWO DOSES)
  9. PROPOFOL. [Concomitant]
     Active Substance: PROPOFOL
     Indication: ANAESTHETIC PREMEDICATION
     Dosage: UNK
  10. ACETYLSALICYLIC ACID [Suspect]
     Active Substance: ASPIRIN
     Indication: THROMBOSIS PROPHYLAXIS
     Dosage: DOSE OF 100 MILLIGRAM(100UNK)
  11. ROCURONIUM [Concomitant]
     Active Substance: ROCURONIUM BROMIDE
     Indication: ANAESTHETIC PREMEDICATION
     Dosage: UNK
  12. HEPARIN [Suspect]
     Active Substance: HEPARIN SODIUM
     Indication: THROMBOSIS PROPHYLAXIS
     Dosage: 2500 INTERNATIONAL UNIT
  13. SEVOFLURANE. [Concomitant]
     Active Substance: SEVOFLURANE
     Indication: ANAESTHESIA
  14. FENTANYL. [Concomitant]
     Active Substance: FENTANYL
     Indication: ANAESTHESIA

REACTIONS (12)
  - Tracheal injury [Recovered/Resolved]
  - Post procedural haemorrhage [Unknown]
  - Melaena [Unknown]
  - Endotracheal intubation complication [Recovered/Resolved]
  - Catheter site haemorrhage [Recovered/Resolved]
  - Respiratory failure [Recovered/Resolved]
  - Haemoptysis [Unknown]
  - Tracheal haemorrhage [Recovered/Resolved]
  - Product use issue [Unknown]
  - Hypothyroidism [Recovered/Resolved]
  - Glaucoma [Recovered/Resolved]
  - Anaemia [Unknown]
